FAERS Safety Report 7724772-3 (Version None)
Quarter: 2011Q3

REPORT INFORMATION
  Report Type: 
  Country: None (occurrence: None)
  Receive Date: 20110901
  Receipt Date: 20110822
  Transmission Date: 20111222
  Serious: No
  Sender: FDA-Public Use
  Company Number: US-B.I. PHARMACEUTICALS,INC./RIDGEFIELD-2011-BP-20547BP

PATIENT
  Age: 82 Year
  Sex: Female

DRUGS (2)
  1. MELOXICAM [Concomitant]
     Indication: ARTHRITIS
  2. PRADAXA [Suspect]
     Dosage: 300 MG
     Route: 048
     Dates: start: 20110701

REACTIONS (1)
  - ARTHRITIS [None]
